FAERS Safety Report 21812761 (Version 1)
Quarter: 2023Q1

REPORT INFORMATION
  Report Type: Spontaneous
  Country: US (occurrence: None)
  Receive Date: 20230101
  Receipt Date: 20230101
  Transmission Date: 20230417
  Serious: Yes (unspecified)
  Sender: FDA-Public Use
  Company Number: None

PATIENT
  Age: 38 Year
  Sex: Female
  Weight: 105.3 kg

DRUGS (7)
  1. CEPHALEXIN [Suspect]
     Active Substance: CEPHALEXIN
     Indication: Urinary tract infection
     Dosage: FREQUENCY : TWICE A DAY;?
     Route: 048
     Dates: start: 20221227, end: 20221231
  2. ENTRESTO [Concomitant]
     Active Substance: SACUBITRIL\VALSARTAN
  3. COREG [Concomitant]
     Active Substance: CARVEDILOL
  4. VITAMIN C [Concomitant]
     Active Substance: ASCORBIC ACID
  5. VITAMIN D NOS [Concomitant]
     Active Substance: VITAMIN D NOS
  6. ZINC [Concomitant]
     Active Substance: ZINC
  7. CURCUMIN [Concomitant]
     Active Substance: CURCUMIN

REACTIONS (7)
  - Headache [None]
  - Chest discomfort [None]
  - Cough [None]
  - Dizziness [None]
  - Hypertension [None]
  - Muscle spasms [None]
  - Chills [None]

NARRATIVE: CASE EVENT DATE: 20221229
